FAERS Safety Report 8827739 (Version 1)
Quarter: 2012Q4

REPORT INFORMATION
  Report Type: 
  Country: ES (occurrence: ES)
  Receive Date: 20121005
  Receipt Date: 20121005
  Transmission Date: 20130627
  Serious: Yes (Hospitalization)
  Sender: FDA-Public Use
  Company Number: ES-B.I. PHARMACEUTICALS,INC./RIDGEFIELD-2012-ES-00371ES

PATIENT
  Age: 60 Year
  Sex: Male

DRUGS (8)
  1. PRADAXA [Suspect]
     Indication: ATRIAL FIBRILLATION
     Dosage: 220 mg
     Route: 048
     Dates: start: 20110923, end: 20120215
  2. ATENOLOL [Concomitant]
     Indication: ISCHAEMIC CARDIOMYOPATHY
     Route: 048
  3. AMLODIPINE BESILATE [Concomitant]
     Indication: HYPERTENSION
     Route: 048
  4. TAMSULOSIN HYDROCHLORIDE [Concomitant]
     Route: 048
  5. RANITIDINA [Concomitant]
     Route: 048
  6. SIMVASTATINA [Concomitant]
     Route: 048
     Dates: end: 20120215
  7. INSULIN [Concomitant]
     Indication: DIABETES MELLITUS
     Route: 058
  8. ADIRO [Concomitant]
     Indication: ISCHAEMIC CARDIOMYOPATHY
     Route: 048

REACTIONS (1)
  - Tubulointerstitial nephritis [Recovered/Resolved]
